FAERS Safety Report 26155009 (Version 1)
Quarter: 2025Q4

REPORT INFORMATION
  Report Type: Spontaneous
  Country: EU (occurrence: EU)
  Receive Date: 20251215
  Receipt Date: 20251215
  Transmission Date: 20260118
  Serious: Yes (Hospitalization)
  Sender: AUROBINDO
  Company Number: EU-AFSSAPS-NT2025001195

PATIENT
  Age: 15 Year
  Sex: Male
  Weight: 178 kg

DRUGS (4)
  1. IMATINIB [Suspect]
     Active Substance: IMATINIB
     Indication: B-cell type acute leukaemia
     Dosage: 550 MILLIGRAM, ONCE A DAY
     Route: 061
     Dates: start: 20251007
  2. DAUNORUBICIN HYDROCHLORIDE [Suspect]
     Active Substance: DAUNORUBICIN HYDROCHLORIDE
     Indication: B-cell type acute leukaemia
     Dosage: 44 MILLIGRAM, ONCE A DAY
     Dates: start: 20250918, end: 20251116
  3. VINCRISTINE SULFATE [Suspect]
     Active Substance: VINCRISTINE SULFATE
     Indication: B-cell type acute leukaemia
     Dosage: 2 MILLIGRAM, ONCE A DAY
     Dates: start: 20250918, end: 20251009
  4. ONCASPAR [Suspect]
     Active Substance: PEGASPARGASE
     Indication: B-cell type acute leukaemia
     Dosage: 2600 INTERNATIONAL UNIT, ONCE A DAY
     Dates: start: 20250922, end: 20251006

REACTIONS (1)
  - Venoocclusive disease [Not Recovered/Not Resolved]

NARRATIVE: CASE EVENT DATE: 20250920
